FAERS Safety Report 6457057-6 (Version None)
Quarter: 2009Q4

REPORT INFORMATION
  Report Type: 
  Country: None (occurrence: None)
  Receive Date: 20091125
  Receipt Date: 20091120
  Transmission Date: 20100525
  Serious: Yes (Other)
  Sender: FDA-Public Use
  Company Number: A0822133A

PATIENT
  Age: 62 Year
  Sex: Male

DRUGS (4)
  1. ZIAGEN [Suspect]
     Indication: HIV INFECTION
     Route: 048
     Dates: start: 20020901
  2. VIREAD [Concomitant]
  3. 3TC [Concomitant]
  4. KALETRA [Concomitant]

REACTIONS (3)
  - BLOOD CREATININE INCREASED [None]
  - LUMBAR VERTEBRAL FRACTURE [None]
  - RENAL DISORDER [None]
